FAERS Safety Report 17322392 (Version 2)
Quarter: 2020Q1

REPORT INFORMATION
  Report Type: Report from Study
  Country: US (occurrence: US)
  Receive Date: 20200127
  Receipt Date: 20200217
  Transmission Date: 20200409
  Serious: Yes (Other)
  Sender: FDA-Public Use
  Company Number: US-ROCHE-2523450

PATIENT
  Age: 36 Year
  Sex: Female
  Weight: 82.63 kg

DRUGS (11)
  1. DULOXETINE. [Concomitant]
     Active Substance: DULOXETINE
     Indication: ANXIETY
  2. GABAPENTIN. [Concomitant]
     Active Substance: GABAPENTIN
     Indication: NEURALGIA
  3. METFORMIN [Concomitant]
     Active Substance: METFORMIN HYDROCHLORIDE
     Indication: TYPE 2 DIABETES MELLITUS
     Route: 065
  4. OMEPRAZOLE. [Concomitant]
     Active Substance: OMEPRAZOLE
     Indication: GASTROOESOPHAGEAL REFLUX DISEASE
     Route: 065
  5. OCREVUS [Suspect]
     Active Substance: OCRELIZUMAB
     Indication: SECONDARY PROGRESSIVE MULTIPLE SCLEROSIS
     Dosage: 29/JAN/2020
     Route: 042
     Dates: start: 20191127
  6. TRAMADOL. [Concomitant]
     Active Substance: TRAMADOL
     Indication: PAIN
     Route: 048
  7. CYCLOBENZAPRINE. [Concomitant]
     Active Substance: CYCLOBENZAPRINE
     Indication: MUSCLE RELAXANT THERAPY
     Route: 048
  8. XOFLUZA [Suspect]
     Active Substance: BALOXAVIR MARBOXIL
     Indication: INFLUENZA
     Route: 065
  9. DULOXETINE. [Concomitant]
     Active Substance: DULOXETINE
     Indication: NEURALGIA
     Route: 048
  10. PREGABALIN. [Concomitant]
     Active Substance: PREGABALIN
     Indication: NEURALGIA
     Route: 065
  11. TAMIFLU [Suspect]
     Active Substance: OSELTAMIVIR PHOSPHATE
     Indication: INFLUENZA
     Dosage: TOOK ONLY ONE PILL OR 7 DAY REGIMEN PRESCRIBED
     Route: 065

REACTIONS (9)
  - Muscle spasms [Recovered/Resolved]
  - Bronchitis [Unknown]
  - Viral infection [Unknown]
  - Diarrhoea [Recovered/Resolved]
  - Sinusitis [Recovered/Resolved]
  - Nasopharyngitis [Recovered/Resolved]
  - Diarrhoea [Recovered/Resolved]
  - Paranasal sinus hypersecretion [Not Recovered/Not Resolved]
  - Influenza [Recovered/Resolved]

NARRATIVE: CASE EVENT DATE: 201912
